FAERS Safety Report 25100919 (Version 1)
Quarter: 2025Q1

REPORT INFORMATION
  Report Type: Spontaneous
  Country: FR (occurrence: FR)
  Receive Date: 20250320
  Receipt Date: 20250320
  Transmission Date: 20250408
  Serious: Yes (Other)
  Sender: SUNOVION
  Company Number: FR-RICHTER-2025-GR-003003

PATIENT

DRUGS (1)
  1. ESTRADIOL\NORETHINDRONE ACETATE\RELUGOLIX [Suspect]
     Active Substance: ESTRADIOL\NORETHINDRONE ACETATE\RELUGOLIX
     Indication: Product used for unknown indication
     Route: 048

REACTIONS (5)
  - Embolism [Unknown]
  - Major depression [Unknown]
  - Palpitations [Unknown]
  - Migraine [Unknown]
  - Hypertension [Unknown]
